FAERS Safety Report 20461383 (Version 2)
Quarter: 2022Q1

REPORT INFORMATION
  Report Type: Report from Study
  Country: US (occurrence: US)
  Receive Date: 20220211
  Receipt Date: 20220330
  Transmission Date: 20220423
  Serious: Yes (Other)
  Sender: FDA-Public Use
  Company Number: US-MYLANLABS-2022M1010758

PATIENT
  Age: 54 Year
  Sex: Male

DRUGS (1)
  1. CLOZAPINE [Suspect]
     Active Substance: CLOZAPINE
     Indication: Product used for unknown indication
     Dosage: 2 TABLETS LESS AT NIGHT THAN PRESCRIBED.

REACTIONS (7)
  - Mental impairment [Unknown]
  - Treatment noncompliance [Unknown]
  - Insomnia [Unknown]
  - Pain [Unknown]
  - Logorrhoea [Unknown]
  - Abnormal behaviour [Unknown]
  - Off label use [Unknown]

NARRATIVE: CASE EVENT DATE: 20220120
